FAERS Safety Report 9913219 (Version 1)
Quarter: 2014Q1

REPORT INFORMATION
  Report Type: Spontaneous
  Country: US (occurrence: US)
  Receive Date: 20140220
  Receipt Date: 20140220
  Transmission Date: 20141002
  Serious: No
  Sender: FDA-Public Use
  Company Number: US-BAYER-2014-026346

PATIENT
  Age: 73 Year
  Sex: Male
  Weight: 84 kg

DRUGS (4)
  1. ALEVE TABLET [Suspect]
     Indication: ANALGESIC THERAPY
     Dosage: 2 DF, ONCE
     Route: 048
     Dates: start: 20140213, end: 20140213
  2. COZAAR [Concomitant]
  3. NEURONTIN [Concomitant]
  4. FLOMAX [MORNIFLUMATE] [Concomitant]

REACTIONS (1)
  - Abdominal discomfort [Recovered/Resolved]
